FAERS Safety Report 24152401 (Version 1)
Quarter: 2024Q3

REPORT INFORMATION
  Report Type: Spontaneous
  Country: US (occurrence: US)
  Receive Date: 20240730
  Receipt Date: 20240730
  Transmission Date: 20241016
  Serious: No
  Sender: EPIC PHARM
  Company Number: US-EPICPHARMA-US-2024EPCSPO00878

PATIENT
  Age: 68 Year
  Sex: Male
  Weight: 240 kg

DRUGS (6)
  1. BUPROPION HYDROCHLORIDE [Suspect]
     Active Substance: BUPROPION HYDROCHLORIDE
     Indication: Major depression
     Route: 048
     Dates: start: 20240703
  2. BUPROPION HYDROCHLORIDE [Suspect]
     Active Substance: BUPROPION HYDROCHLORIDE
  3. BUPROPION HYDROCHLORIDE [Suspect]
     Active Substance: BUPROPION HYDROCHLORIDE
     Indication: Major depression
     Route: 048
     Dates: start: 20240703
  4. BUPROPION HYDROCHLORIDE [Suspect]
     Active Substance: BUPROPION HYDROCHLORIDE
  5. MELATONIN [Concomitant]
     Active Substance: MELATONIN
     Indication: Product used for unknown indication
     Route: 065
  6. ROSUVASTATIN [Concomitant]
     Active Substance: ROSUVASTATIN\ROSUVASTATIN CALCIUM
     Indication: Product used for unknown indication
     Route: 065

REACTIONS (1)
  - Hypersomnia [Not Recovered/Not Resolved]

NARRATIVE: CASE EVENT DATE: 20240704
